FAERS Safety Report 13909193 (Version 1)
Quarter: 2017Q3

REPORT INFORMATION
  Report Type: Spontaneous
  Country: US (occurrence: US)
  Receive Date: 20170828
  Receipt Date: 20170828
  Transmission Date: 20171127
  Serious: Yes (Other)
  Sender: FDA-Public Use
  Company Number: US-ACS-000731

PATIENT
  Age: 43 Year
  Sex: Male

DRUGS (3)
  1. MEROPENEM. [Suspect]
     Active Substance: MEROPENEM
     Indication: BACTERIAL INFECTION
     Route: 042
  2. PENICILLIN G [Suspect]
     Active Substance: PENICILLIN G
     Indication: BACTERIAL INFECTION
     Route: 042
  3. TRIMETHOPRIM-SULFAMETHOXAZOLE [Suspect]
     Active Substance: SULFAMETHOXAZOLE\TRIMETHOPRIM
     Indication: BACTERIAL INFECTION
     Route: 042

REACTIONS (3)
  - Seizure [Unknown]
  - Thrombocytopenia [Unknown]
  - Fluid overload [Unknown]
